FAERS Safety Report 10384185 (Version 1)
Quarter: 2014Q3

REPORT INFORMATION
  Report Type: Report from Study
  Country: US (occurrence: US)
  Receive Date: 20140814
  Receipt Date: 20140814
  Transmission Date: 20150326
  Serious: Yes (Death)
  Sender: FDA-Public Use
  Company Number: US-ASTELLAS-2014US010070

PATIENT

DRUGS (1)
  1. ERLOTINIB [Suspect]
     Active Substance: ERLOTINIB
     Indication: LUNG NEOPLASM MALIGNANT
     Dosage: TAKE 2 TABS 25 MG, ONCE DAILY
     Route: 048
     Dates: end: 20140115

REACTIONS (2)
  - Malignant neoplasm progression [None]
  - Death [Fatal]

NARRATIVE: CASE EVENT DATE: 20140203
